FAERS Safety Report 25154497 (Version 4)
Quarter: 2025Q3

REPORT INFORMATION
  Report Type: Report from Study
  Country: US (occurrence: US)
  Receive Date: 20250403
  Receipt Date: 20250916
  Transmission Date: 20251020
  Serious: Yes (Disabling)
  Sender: NOVARTIS
  Company Number: US-002147023-NVSC2025US054070

PATIENT
  Sex: Female

DRUGS (2)
  1. KESIMPTA [Suspect]
     Active Substance: OFATUMUMAB
     Indication: Product used for unknown indication
     Route: 058
     Dates: start: 20250330
  2. PRALUENT [Concomitant]
     Active Substance: ALIROCUMAB
     Indication: Product used for unknown indication
     Route: 065

REACTIONS (12)
  - Mobility decreased [Unknown]
  - Influenza like illness [Unknown]
  - Hypersensitivity [Unknown]
  - Throat irritation [Unknown]
  - Nasal discomfort [Unknown]
  - Nausea [Unknown]
  - Pyrexia [Unknown]
  - Illness [Unknown]
  - Fatigue [Unknown]
  - Migraine [Unknown]
  - Headache [Unknown]
  - Gastrointestinal disorder [Unknown]
